FAERS Safety Report 22143146 (Version 7)
Quarter: 2024Q3

REPORT INFORMATION
  Report Type: Report from Study
  Country: CA (occurrence: CA)
  Receive Date: 20230327
  Receipt Date: 20240826
  Transmission Date: 20241017
  Serious: No
  Sender: ROCHE
  Company Number: CA-ROCHE-3307403

PATIENT
  Age: 31 Year
  Sex: Female

DRUGS (1)
  1. OCREVUS [Suspect]
     Active Substance: OCRELIZUMAB
     Indication: Relapsing-remitting multiple sclerosis
     Dosage: THEN 600 MG EVERY 6 MONTH
     Route: 042
     Dates: start: 20230308, end: 20240103

REACTIONS (7)
  - Infusion related reaction [Not Recovered/Not Resolved]
  - Headache [Unknown]
  - Panic attack [Not Recovered/Not Resolved]
  - Dyspepsia [Unknown]
  - Nasopharyngitis [Recovering/Resolving]
  - Tunnel vision [Recovered/Resolved]
  - Influenza [Recovering/Resolving]

NARRATIVE: CASE EVENT DATE: 20230308
